FAERS Safety Report 10203989 (Version 1)
Quarter: 2014Q2

REPORT INFORMATION
  Report Type: Spontaneous
  Country: JP (occurrence: JP)
  Receive Date: 20140529
  Receipt Date: 20140529
  Transmission Date: 20141212
  Serious: Yes (Other)
  Sender: FDA-Public Use
  Company Number: JP-ROCHE-1406209

PATIENT
  Age: 86 Year
  Sex: Female

DRUGS (2)
  1. RIVOTRIL [Suspect]
     Indication: PRODUCT USED FOR UNKNOWN INDICATION
     Route: 050
  2. RISPERDAL [Concomitant]
     Dosage: DOSAGE IS UNCERTAIN.
     Route: 050

REACTIONS (3)
  - Cardio-respiratory arrest [Unknown]
  - Coma [Unknown]
  - Medication error [Unknown]
